FAERS Safety Report 21738433 (Version 1)
Quarter: 2022Q4

REPORT INFORMATION
  Report Type: Spontaneous
  Country: US (occurrence: US)
  Receive Date: 20221216
  Receipt Date: 20221216
  Transmission Date: 20230112
  Serious: No
  Sender: FDA-Public Use
  Company Number: US-ENDO PHARMACEUTICALS INC-2022-000372

PATIENT
  Age: 64 Year
  Sex: Male
  Weight: 79.365 kg

DRUGS (1)
  1. XIAFLEX [Suspect]
     Active Substance: COLLAGENASE CLOSTRIDIUM HISTOLYTICUM
     Indication: Peyronie^s disease
     Dosage: 0.9 MG/VIAL, UNKNOWN (TREATMENT ONE)
     Route: 065
     Dates: start: 20220117

REACTIONS (4)
  - Abdominal distension [Not Recovered/Not Resolved]
  - Penile swelling [Not Recovered/Not Resolved]
  - Contusion [Not Recovered/Not Resolved]
  - Penile contusion [Not Recovered/Not Resolved]

NARRATIVE: CASE EVENT DATE: 20220101
